FAERS Safety Report 7038444-4 (Version None)
Quarter: 2010Q4

REPORT INFORMATION
  Report Type: 
  Country: None (occurrence: None)
  Receive Date: 20101011
  Receipt Date: 20100429
  Transmission Date: 20110411
  Serious: No
  Sender: FDA-Public Use
  Company Number: US-PFIZER INC-2010055061

PATIENT
  Sex: Female
  Weight: 64 kg

DRUGS (2)
  1. NEURONTIN [Suspect]
     Indication: NEUROPATHY PERIPHERAL
     Dosage: 300 MG, DALIY
     Route: 048
     Dates: start: 20100201
  2. NEURONTIN [Suspect]
     Dosage: 400MG, TWO CAPSULES, 2X/DAY
     Route: 048
     Dates: start: 20100201

REACTIONS (3)
  - BURNING SENSATION [None]
  - DIZZINESS [None]
  - DRUG INEFFECTIVE [None]
